FAERS Safety Report 6246395-8 (Version None)
Quarter: 2009Q2

REPORT INFORMATION
  Report Type: 
  Country: None (occurrence: None)
  Receive Date: 20090624
  Receipt Date: 20090624
  Transmission Date: 20091009
  Serious: No
  Sender: FDA-Public Use
  Company Number: None

PATIENT
  Sex: Female
  Weight: 81.6475 kg

DRUGS (2)
  1. MELOXICAM [Suspect]
     Indication: ARTHRITIS
     Dosage: DAILY PO
     Route: 048
     Dates: start: 20050101, end: 20090510
  2. MELOXICAM [Suspect]
     Indication: HEADACHE
     Dosage: DAILY PO
     Route: 048
     Dates: start: 20050101, end: 20090510

REACTIONS (4)
  - HEADACHE [None]
  - MENINGITIS VIRAL [None]
  - SINUS DISORDER [None]
  - STRESS [None]
